FAERS Safety Report 16265273 (Version 1)
Quarter: 2019Q2

REPORT INFORMATION
  Report Type: Spontaneous
  Country: US (occurrence: US)
  Receive Date: 20190501
  Receipt Date: 20190501
  Transmission Date: 20190711
  Serious: Yes (Other)
  Sender: FDA-Public Use
  Company Number: None

PATIENT
  Age: 38 Year
  Sex: Male

DRUGS (8)
  1. MAVYRET [Suspect]
     Active Substance: GLECAPREVIR\PIBRENTASVIR
     Indication: HEPATITIS C
     Route: 048
     Dates: start: 20190426
  2. BUSPIRONE [Concomitant]
     Active Substance: BUSPIRONE HYDROCHLORIDE
  3. IBUPROFEN. [Concomitant]
     Active Substance: IBUPROFEN
  4. FLUTICASONE. [Concomitant]
     Active Substance: FLUTICASONE
  5. GABAPENTIN. [Concomitant]
     Active Substance: GABAPENTIN
  6. ACYCLOVIR. [Concomitant]
     Active Substance: ACYCLOVIR
  7. CETIRIZINE [Concomitant]
     Active Substance: CETIRIZINE HYDROCHLORIDE
  8. NAPROXEN. [Concomitant]
     Active Substance: NAPROXEN

REACTIONS (4)
  - Middle insomnia [None]
  - Physical assault [None]
  - Aggression [None]
  - Choking [None]

NARRATIVE: CASE EVENT DATE: 20190430
